FAERS Safety Report 7959737-X (Version None)
Quarter: 2011Q4

REPORT INFORMATION
  Report Type: 
  Country: None (occurrence: None)
  Receive Date: 20111206
  Receipt Date: 20111128
  Transmission Date: 20120403
  Serious: Yes (Other)
  Sender: FDA-Public Use
  Company Number: US-GLAXOSMITHKLINE-A0956580A

PATIENT
  Age: 23 Year
  Sex: Female

DRUGS (4)
  1. LAMOTRIGINE [Suspect]
     Indication: EPILEPSY
     Dosage: 25MG FOURTEEN TIMES PER DAY
     Dates: start: 20090101
  2. ZONEGRAN [Concomitant]
  3. ZOLOFT [Concomitant]
  4. ADDERALL 5 [Concomitant]

REACTIONS (5)
  - PERFORMANCE STATUS DECREASED [None]
  - CONVULSION [None]
  - DISABILITY [None]
  - IMPAIRED DRIVING ABILITY [None]
  - ADVERSE EVENT [None]
